FAERS Safety Report 23999856 (Version 8)
Quarter: 2024Q4

REPORT INFORMATION
  Report Type: Spontaneous
  Country: US (occurrence: US)
  Receive Date: 20240621
  Receipt Date: 20241202
  Transmission Date: 20250115
  Serious: Yes (Death, Hospitalization, Other)
  Sender: SUNOVION
  Company Number: US-MYOVANT SCIENCES GMBH-2024MYSCI0600114

PATIENT

DRUGS (4)
  1. ORGOVYX [Suspect]
     Active Substance: RELUGOLIX
     Indication: Prostate cancer
     Dosage: 360 MILLIGRAM, ONE TIME DOSE
     Route: 048
     Dates: start: 20210425, end: 20210425
  2. ORGOVYX [Suspect]
     Active Substance: RELUGOLIX
     Dosage: 120 MG, QD
     Route: 048
     Dates: start: 20210426
  3. ORGOVYX [Suspect]
     Active Substance: RELUGOLIX
     Dosage: 120 MG, QD
     Route: 048
  4. XTANDI [Suspect]
     Active Substance: ENZALUTAMIDE
     Indication: Prostate cancer
     Dosage: 160 MILLIGRAM, QD
     Route: 048
     Dates: start: 20240227

REACTIONS (12)
  - Death [Fatal]
  - Malignant neoplasm progression [Unknown]
  - Fall [Unknown]
  - Head injury [Unknown]
  - Pneumonia [Unknown]
  - Urinary tract infection [Unknown]
  - Echocardiogram abnormal [Unknown]
  - Cardiac ventricular disorder [Unknown]
  - Product temperature excursion issue [Unknown]
  - Amnesia [Unknown]
  - Prostatic specific antigen increased [Unknown]
  - Fatigue [Unknown]
